FAERS Safety Report 6637806-4 (Version None)
Quarter: 2010Q1

REPORT INFORMATION
  Report Type: 
  Country: None (occurrence: None)
  Receive Date: 20100317
  Receipt Date: 20100303
  Transmission Date: 20100710
  Serious: Yes (Hospitalization)
  Sender: FDA-Public Use
  Company Number: PHHY2010BE12174

PATIENT
  Sex: Male
  Weight: 20 kg

DRUGS (2)
  1. RITALIN [Suspect]
     Indication: ATTENTION DEFICIT/HYPERACTIVITY DISORDER
     Dosage: 25 MG DAILY
     Dates: start: 20090101, end: 20090701
  2. RITALIN-SR [Suspect]
     Indication: ATTENTION DEFICIT/HYPERACTIVITY DISORDER
     Dosage: 20 MG DAILY
     Dates: start: 20090713, end: 20091023

REACTIONS (9)
  - ASTHENIA [None]
  - CHEST PAIN [None]
  - HEADACHE [None]
  - HOT FLUSH [None]
  - MALAISE [None]
  - NAUSEA [None]
  - PALLOR [None]
  - VERTIGO [None]
  - VOMITING [None]
